FAERS Safety Report 20722985 (Version 2)
Quarter: 2022Q2

REPORT INFORMATION
  Report Type: Spontaneous
  Country: US (occurrence: None)
  Receive Date: 20220419
  Receipt Date: 20220518
  Transmission Date: 20220721
  Serious: Yes (Death)
  Sender: FDA-Public Use
  Company Number: US-ROCHE-3077778

PATIENT
  Sex: Male

DRUGS (1)
  1. ESBRIET [Suspect]
     Active Substance: PIRFENIDONE
     Indication: Pulmonary fibrosis
     Dosage: 3 TIMES DAILY
     Route: 048
     Dates: start: 202203

REACTIONS (2)
  - Testis cancer [Fatal]
  - Pulmonary toxicity [Fatal]
